FAERS Safety Report 12878522 (Version 2)
Quarter: 2016Q4

REPORT INFORMATION
  Report Type: Report from Study
  Country: NL (occurrence: NL)
  Receive Date: 20161024
  Receipt Date: 20161117
  Transmission Date: 20170207
  Serious: Yes (Death)
  Sender: FDA-Public Use
  Company Number: PHHY2016NL145135

PATIENT
  Age: 68 Year
  Sex: Female
  Weight: 73.1 kg

DRUGS (2)
  1. ZOMETA [Suspect]
     Active Substance: ZOLEDRONIC ACID
     Indication: METASTASES TO BONE
     Dosage: 4 MG/100 ML, ONCE PER 4 WEEKS
     Route: 042
     Dates: start: 201505
  2. ZOMETA [Suspect]
     Active Substance: ZOLEDRONIC ACID
     Indication: BREAST CANCER
     Dosage: UNK
     Route: 042
     Dates: start: 20150420

REACTIONS (2)
  - Malignant neoplasm progression [Fatal]
  - Breast cancer [Fatal]

NARRATIVE: CASE EVENT DATE: 20161014
